FAERS Safety Report 7934446-1 (Version None)
Quarter: 2011Q4

REPORT INFORMATION
  Report Type: 
  Country: None (occurrence: None)
  Receive Date: 20111122
  Receipt Date: 20111118
  Transmission Date: 20120403
  Serious: Yes (Hospitalization)
  Sender: FDA-Public Use
  Company Number: US-GLAXOSMITHKLINE-A0953995A

PATIENT
  Age: 61 Year
  Sex: Female
  Weight: 38.2 kg

DRUGS (1)
  1. TYKERB [Suspect]
     Indication: BREAST CANCER
     Dosage: 1250MG PER DAY
     Route: 065

REACTIONS (3)
  - PNEUMONIA [None]
  - WEIGHT DECREASED [None]
  - PULMONARY OEDEMA [None]
